FAERS Safety Report 10882493 (Version 1)
Quarter: 2015Q1

REPORT INFORMATION
  Report Type: Spontaneous
  Country: PT (occurrence: PT)
  Receive Date: 20150303
  Receipt Date: 20150303
  Transmission Date: 20150721
  Serious: Yes (Hospitalization, Other)
  Sender: FDA-Public Use
  Company Number: PT-ACTAVIS-2015-04224

PATIENT
  Age: 5 Year
  Sex: Male

DRUGS (1)
  1. IBUPROFEN (UNKNOWN) [Suspect]
     Active Substance: IBUPROFEN
     Indication: VARICELLA
     Dosage: UNK
     Route: 065

REACTIONS (4)
  - Pneumonia streptococcal [Unknown]
  - Superinfection bacterial [Unknown]
  - Skin necrosis [Unknown]
  - Splenic abscess [Recovered/Resolved]
